FAERS Safety Report 13538291 (Version 2)
Quarter: 2017Q2

REPORT INFORMATION
  Report Type: Spontaneous
  Country: JP (occurrence: JP)
  Receive Date: 20170512
  Receipt Date: 20170515
  Transmission Date: 20170830
  Serious: Yes (Other)
  Sender: FDA-Public Use
  Company Number: JP-009507513-1705JPN000710J

PATIENT

DRUGS (2)
  1. GRAZYNA TABLETS 50MG [Suspect]
     Active Substance: GRAZOPREVIR
     Dosage: UNK
     Route: 048
  2. ERELSA TABLETS 50MG [Suspect]
     Active Substance: ELBASVIR
     Dosage: UNK
     Route: 048

REACTIONS (1)
  - Platelet count decreased [Unknown]
